FAERS Safety Report 8244351-1 (Version None)
Quarter: 2012Q1

REPORT INFORMATION
  Report Type: 
  Country: None (occurrence: None)
  Receive Date: 20120329
  Receipt Date: 20120323
  Transmission Date: 20120608
  Serious: Yes (Hospitalization)
  Sender: FDA-Public Use
  Company Number: US-PFIZER INC-2012021666

PATIENT
  Age: 80 Year
  Sex: Female
  Weight: 54.422 kg

DRUGS (8)
  1. PRAVASTATIN [Concomitant]
     Dosage: UNK
  2. ADVIL LIQUI-GELS [Suspect]
     Indication: HEADACHE
     Dosage: 200 MG, AS NEEDED
     Route: 048
  3. OMEPRAZOLE [Concomitant]
     Dosage: UNK
  4. FAMOTIDINE [Concomitant]
     Indication: ULCER
     Dosage: UNK
  5. TRAMADOL [Concomitant]
     Indication: PAIN
     Dosage: UNK
  6. NAPROXEN [Concomitant]
     Dosage: UNK
  7. ADVIL LIQUI-GELS [Suspect]
     Indication: BACK PAIN
  8. METOPROLOL [Concomitant]
     Dosage: UNK

REACTIONS (2)
  - POOR QUALITY DRUG ADMINISTERED [None]
  - HYPOTENSION [None]
